FAERS Safety Report 8589613-3 (Version None)
Quarter: 2012Q3

REPORT INFORMATION
  Report Type: 
  Country: None (occurrence: None)
  Receive Date: 20120813
  Receipt Date: 20120809
  Transmission Date: 20120928
  Serious: Yes (Death)
  Sender: FDA-Public Use
  Company Number: US-ROCHE-1040722

PATIENT
  Sex: Male

DRUGS (4)
  1. AVASTIN [Suspect]
     Indication: COLORECTAL CANCER METASTATIC
     Route: 042
  2. ATIVAN [Concomitant]
  3. OXYCODONE [Concomitant]
  4. OXYCONTIN [Concomitant]

REACTIONS (2)
  - PRODUCT QUALITY ISSUE [None]
  - HEPATIC FAILURE [None]
